FAERS Safety Report 8071266-4 (Version None)
Quarter: 2012Q1

REPORT INFORMATION
  Report Type: 
  Country: None (occurrence: None)
  Receive Date: 20120125
  Receipt Date: 20120113
  Transmission Date: 20120608
  Serious: Yes (Hospitalization)
  Sender: FDA-Public Use
  Company Number: KR-PFIZER INC-2012010037

PATIENT
  Age: 38 Year
  Sex: Male
  Weight: 60.5 kg

DRUGS (3)
  1. ATORVASTATIN CALCIUM [Concomitant]
     Dosage: UNK
     Dates: start: 20111006
  2. DIOVAN [Concomitant]
     Indication: HYPERTENSION
     Dosage: UNK
     Dates: start: 20110805
  3. SIROLIMUS [Suspect]
     Indication: IMMUNOSUPPRESSION
     Dosage: 4 MG, 1X/DAY
     Route: 048
     Dates: start: 20110813

REACTIONS (1)
  - DIABETES MELLITUS [None]
